FAERS Safety Report 4594275-6 (Version None)
Quarter: 2005Q1

REPORT INFORMATION
  Report Type: 
  Country: None (occurrence: None)
  Receive Date: 20050301
  Receipt Date: 20040903
  Transmission Date: 20050727
  Serious: No
  Sender: FDA-Public Use
  Company Number: US-GLAXOSMITHKLINE-A0524700A

PATIENT
  Age: 39 Year
  Sex: Female
  Weight: 78.2 kg

DRUGS (1)
  1. VALTREX [Suspect]
     Indication: HERPES SIMPLEX
     Dosage: 500MG PER DAY
     Route: 048

REACTIONS (2)
  - DRUG EXPOSURE DURING PREGNANCY [None]
  - PLATELET COUNT DECREASED [None]
